FAERS Safety Report 21376382 (Version 2)
Quarter: 2024Q1

REPORT INFORMATION
  Report Type: Report from Study
  Country: JP (occurrence: JP)
  Receive Date: 20220926
  Receipt Date: 20240214
  Transmission Date: 20240410
  Serious: Yes (Other)
  Sender: FDA-Public Use
  Company Number: JP-BIOCRYST PHARMACEUTICALS, INC.-2022BCR00627

PATIENT
  Age: 35 Year
  Sex: Male
  Weight: 96 kg

DRUGS (5)
  1. ORLADEYO [Suspect]
     Active Substance: BEROTRALSTAT HYDROCHLORIDE
     Indication: Hereditary angioedema
     Dosage: 150 MG, QD
     Route: 048
     Dates: start: 20220525
  2. BERINERT P [Concomitant]
     Active Substance: HUMAN C1-ESTERASE INHIBITOR
     Indication: Hereditary angioedema
     Dosage: UNK, ONCE
     Route: 042
     Dates: start: 20220525, end: 20220525
  3. BERINERT P [Concomitant]
     Active Substance: HUMAN C1-ESTERASE INHIBITOR
     Dosage: UNK, ONCE
     Route: 042
     Dates: start: 20230420, end: 20230420
  4. FIRAZYR [Concomitant]
     Active Substance: ICATIBANT ACETATE
     Indication: Hereditary angioedema
     Dosage: 30 MG, ONCE
     Route: 058
     Dates: start: 20220804
  5. FIRAZYR [Concomitant]
     Active Substance: ICATIBANT ACETATE
     Dosage: 30 MG, ONCE
     Route: 058
     Dates: start: 20230209, end: 20230209

REACTIONS (2)
  - Deafness [Unknown]
  - Visual acuity reduced [Unknown]
